FAERS Safety Report 8612045-6 (Version None)
Quarter: 2012Q3

REPORT INFORMATION
  Report Type: 
  Country: None (occurrence: None)
  Receive Date: 20120809
  Receipt Date: 20120730
  Transmission Date: 20120928
  Serious: Yes (Death)
  Sender: FDA-Public Use
  Company Number: JP-2012-15854

PATIENT
  Age: 73 Year
  Sex: Male

DRUGS (6)
  1. LASIX [Concomitant]
  2. THEO-DUR [Concomitant]
  3. SYMBICORT [Concomitant]
  4. SAMSCA [Suspect]
     Indication: RIGHT VENTRICULAR FAILURE
     Dosage: 15 MG MILLIGRAM(S), QD, ORAL ; 3.75 MG MILLIGRAM(S), QD, ORAL
     Route: 048
     Dates: end: 20120709
  5. SAMSCA [Suspect]
     Indication: RIGHT VENTRICULAR FAILURE
     Dosage: 15 MG MILLIGRAM(S), QD, ORAL ; 3.75 MG MILLIGRAM(S), QD, ORAL
     Route: 048
     Dates: start: 20120710
  6. SPIRIVA [Concomitant]

REACTIONS (2)
  - WEIGHT DECREASED [None]
  - PULMONARY HYPERTENSION [None]
